FAERS Safety Report 4822046-1 (Version None)
Quarter: 2005Q4

REPORT INFORMATION
  Report Type: 
  Country: None (occurrence: None)
  Receive Date: 20051107
  Receipt Date: 20051028
  Transmission Date: 20060501
  Serious: Yes (Death, Hospitalization)
  Sender: FDA-Public Use
  Company Number: FR-ABBOTT-05P-056-0315874-00

PATIENT
  Age: 5 Year
  Sex: Female

DRUGS (2)
  1. DEPAKENE [Suspect]
     Indication: BALANCE DISORDER
     Route: 048
     Dates: start: 20050601
  2. DEPAKENE [Suspect]
     Indication: ELECTROENCEPHALOGRAM ABNORMAL

REACTIONS (6)
  - BILE DUCT OBSTRUCTION [None]
  - GASTROENTERITIS [None]
  - HEPATITIS [None]
  - LIVER DISORDER [None]
  - PANCREATIC HAEMORRHAGE [None]
  - TRANSAMINASES INCREASED [None]
